FAERS Safety Report 10470845 (Version 6)
Quarter: 2015Q3

REPORT INFORMATION
  Report Type: Spontaneous
  Country: US (occurrence: US)
  Receive Date: 20140923
  Receipt Date: 20150812
  Transmission Date: 20151125
  Serious: Yes (Hospitalization, Disabling, Other)
  Sender: FDA-Public Use
  Company Number: US-009507513-1409USA010743

PATIENT
  Sex: Male
  Weight: 112.47 kg

DRUGS (1)
  1. JANUVIA [Suspect]
     Active Substance: SITAGLIPTIN PHOSPHATE
     Indication: TYPE 2 DIABETES MELLITUS
     Dosage: 100 MG, BID
     Route: 048
     Dates: start: 2008, end: 2013

REACTIONS (36)
  - Early satiety [Unknown]
  - Malnutrition [Unknown]
  - Oedema peripheral [Recovering/Resolving]
  - Back pain [Unknown]
  - Recall phenomenon [Unknown]
  - Drug ineffective [Unknown]
  - Pancreatic carcinoma metastatic [Unknown]
  - Hypertension [Unknown]
  - Anaemia [Unknown]
  - Chromaturia [Unknown]
  - Hypotension [Unknown]
  - Hepatic cirrhosis [Unknown]
  - Flatulence [Unknown]
  - Nausea [Unknown]
  - Metastases to lymph nodes [Unknown]
  - Pancreaticoduodenectomy [Unknown]
  - Inappropriate schedule of drug administration [Unknown]
  - Blister [Unknown]
  - Malabsorption [Unknown]
  - Spinal fusion surgery [Unknown]
  - Gastrooesophageal reflux disease [Unknown]
  - Hepatic lesion [Unknown]
  - Steatorrhoea [Recovering/Resolving]
  - Abdominal pain [Unknown]
  - Hernia repair [Unknown]
  - Wound drainage [Recovered/Resolved]
  - Drug administration error [Unknown]
  - Hypoalbuminaemia [Unknown]
  - Vomiting [Unknown]
  - Abdominal pain upper [Unknown]
  - Bile duct stent insertion [Unknown]
  - Cholecystitis chronic [Not Recovered/Not Resolved]
  - Back disorder [Unknown]
  - Scleral disorder [Unknown]
  - Hypotension [Unknown]
  - Chest pain [Recovered/Resolved]

NARRATIVE: CASE EVENT DATE: 2008
